FAERS Safety Report 9109745 (Version 1)
Quarter: 2013Q1

REPORT INFORMATION
  Report Type: Report from Study
  Country: US (occurrence: US)
  Receive Date: 20130222
  Receipt Date: 20130222
  Transmission Date: 20140127
  Serious: Yes (Hospitalization)
  Sender: FDA-Public Use
  Company Number: US-UCBSA-075806

PATIENT
  Age: 45 Year
  Sex: Female
  Weight: 68.49 kg

DRUGS (20)
  1. CIMZIA [Suspect]
     Indication: CROHN^S DISEASE
     Route: 058
     Dates: start: 20120211, end: 20120428
  2. CIMZIA [Suspect]
     Indication: CROHN^S DISEASE
     Route: 058
     Dates: start: 20120512
  3. CIPRO [Concomitant]
     Indication: CROHN^S DISEASE
     Dates: start: 20120117
  4. CIPRO [Concomitant]
     Indication: CROHN^S DISEASE
     Route: 048
     Dates: start: 20120426
  5. TINIDAZOLE [Concomitant]
     Indication: CROHN^S DISEASE
     Dates: start: 20120130
  6. TINIDAZOLE [Concomitant]
     Indication: CROHN^S DISEASE
     Route: 048
     Dates: start: 20120621
  7. ENTOCORT EC [Concomitant]
     Indication: CROHN^S DISEASE
     Dates: start: 2007
  8. ENTOCORT EC [Concomitant]
     Indication: CROHN^S DISEASE
     Dosage: 3 CAP BY MOUTH  ONE TIME DAILY
     Route: 048
     Dates: start: 20120522
  9. PREDNISONE [Concomitant]
     Indication: CROHN^S DISEASE
     Dates: start: 20080922, end: 20090202
  10. PREDNISONE [Concomitant]
     Indication: CROHN^S DISEASE
     Dates: start: 20120202, end: 20120816
  11. PREDNISONE [Concomitant]
     Indication: CROHN^S DISEASE
     Dates: start: 20121216
  12. MYFORTIC [Concomitant]
     Indication: CROHN^S DISEASE
     Dates: start: 2007
  13. MYFORTIC [Concomitant]
     Indication: CROHN^S DISEASE
     Dates: start: 2007
  14. MYFORTIC [Concomitant]
     Indication: CROHN^S DISEASE
     Dosage: 2 TABS BY MOUTH 2 TIMES DAILY AT MEALTIME
     Route: 048
     Dates: start: 20120522
  15. MYFORTIC [Concomitant]
     Indication: CROHN^S DISEASE
     Dosage: 2 TABS BY MOUTH 2 TIMES DAILY AT MEALTIME
     Route: 048
     Dates: start: 20120522
  16. TYLENOL [Concomitant]
     Indication: CROHN^S DISEASE
     Dosage: 2 TABS BY MOUTH EVERY 4 HRS
     Route: 048
     Dates: start: 20120117
  17. LOMOTIL [Concomitant]
     Indication: CROHN^S DISEASE
     Dosage: 1-2 TABLETS BY MOUTH 3 TIMES DAILY
     Route: 048
     Dates: start: 20120816
  18. VITAMIN D [Concomitant]
     Dosage: 1 CAPSULE BY MOUTH
     Route: 048
     Dates: start: 20110913
  19. LACTOBACILLUS [Concomitant]
     Dosage: 1 CAPSULE BY MOUTH
     Route: 048
  20. AMBIEN [Concomitant]
     Indication: INSOMNIA
     Dosage: 1 TAB BY MOUTH ONE TIME DAILY AT BEDTIME
     Route: 048
     Dates: start: 20120426

REACTIONS (1)
  - Anal abscess [Recovered/Resolved with Sequelae]
